FAERS Safety Report 21512955 (Version 1)
Quarter: 2022Q4

REPORT INFORMATION
  Report Type: Spontaneous
  Country: US (occurrence: None)
  Receive Date: 20221026
  Receipt Date: 20221026
  Transmission Date: 20230112
  Serious: Yes (Death)
  Sender: FDA-Public Use
  Company Number: None

PATIENT
  Age: 63 Year
  Sex: Female
  Weight: 55.79 kg

DRUGS (21)
  1. KEYTRUDA [Suspect]
     Active Substance: PEMBROLIZUMAB
     Indication: Lung neoplasm malignant
     Dosage: OTHER FREQUENCY : Q3WEEKS ;?
     Route: 042
     Dates: start: 202109
  2. ZOLEDRONIC [Suspect]
     Active Substance: ZOLEDRONIC ACID
     Indication: Lung neoplasm malignant
     Dosage: OTHER FREQUENCY : Q4WEEKS ;?
     Route: 042
     Dates: start: 202109
  3. ACETAMINOPHEN [Concomitant]
  4. ALBUTEROL [Concomitant]
  5. AMBIEN [Concomitant]
  6. CALCIUM [Concomitant]
     Active Substance: CALCIUM
  7. CIMETIDINE [Concomitant]
  8. CYCLOBENZAPRINE [Concomitant]
  9. FERROUS SULFATE [Concomitant]
  10. FLONASE [Concomitant]
  11. IBUPROFEN [Concomitant]
  12. INLYTA [Concomitant]
  13. LIPITOR [Concomitant]
  14. LORATADINE [Concomitant]
  15. MULTIVITAMIN [Concomitant]
  16. MYLANTA [Concomitant]
  17. OXYCODONE [Concomitant]
  18. PANTOPRAZOLE [Concomitant]
  19. TESSALON PERLES [Concomitant]
  20. TRAMADOL [Concomitant]
  21. TRIAMCINOLONE [Concomitant]

REACTIONS (1)
  - Death [None]
